FAERS Safety Report 18452251 (Version 1)
Quarter: 2020Q4

REPORT INFORMATION
  Report Type: Spontaneous
  Country: US (occurrence: US)
  Receive Date: 20201102
  Receipt Date: 20201102
  Transmission Date: 20210114
  Serious: No
  Sender: FDA-Public Use
  Company Number: US-JNJFOC-20201044513

PATIENT
  Sex: Female

DRUGS (15)
  1. ZOFRAN [Concomitant]
     Active Substance: ONDANSETRON HYDROCHLORIDE
     Route: 065
  2. XARELTO [Suspect]
     Active Substance: RIVAROXABAN
     Indication: PRODUCT USED FOR UNKNOWN INDICATION
     Route: 048
  3. HEPARIN [Concomitant]
     Active Substance: HEPARIN SODIUM
     Route: 065
  4. TYLENOL [Concomitant]
     Active Substance: ACETAMINOPHEN
     Route: 065
  5. ROXICODONE [Concomitant]
     Active Substance: OXYCODONE HYDROCHLORIDE
     Route: 065
  6. SILVADENE [Concomitant]
     Active Substance: SILVER SULFADIAZINE
     Route: 065
  7. ALDACTONE [Concomitant]
     Active Substance: SPIRONOLACTONE
     Route: 065
  8. ASPRIN [Concomitant]
     Active Substance: ASPIRIN
     Route: 065
  9. ANTIVERT                           /00007101/ [Concomitant]
     Active Substance: MECLIZINE MONOHYDROCHLORIDE\NIACIN
     Route: 065
  10. POTASSIUM CHLORIDE. [Concomitant]
     Active Substance: POTASSIUM CHLORIDE
     Route: 065
  11. COREG [Concomitant]
     Active Substance: CARVEDILOL
     Route: 065
  12. BENADRYL [Concomitant]
     Active Substance: DIPHENHYDRAMINE HYDROCHLORIDE
     Route: 065
  13. LASIX [Concomitant]
     Active Substance: FUROSEMIDE
     Route: 065
  14. SSD [Concomitant]
     Active Substance: SILVER SULFADIAZINE
     Route: 065
  15. PROVENTIL HFA [Concomitant]
     Active Substance: ALBUTEROL SULFATE
     Route: 065

REACTIONS (1)
  - Abdominal pain [Unknown]
